FAERS Safety Report 9625017 (Version 1)
Quarter: 2013Q4

REPORT INFORMATION
  Report Type: Spontaneous
  Country: US (occurrence: US)
  Receive Date: 20131016
  Receipt Date: 20131016
  Transmission Date: 20140711
  Serious: No
  Sender: FDA-Public Use
  Company Number: US-009507513-1310USA000110

PATIENT
  Sex: Female

DRUGS (2)
  1. ZETIA [Suspect]
     Indication: BLOOD CHOLESTEROL
     Dosage: 10 MG / ONCE DAILY
     Route: 048
     Dates: start: 2008
  2. HYDROCHLOROTHIAZIDE [Concomitant]
     Dosage: UNK

REACTIONS (6)
  - Pollakiuria [Not Recovered/Not Resolved]
  - Therapeutic response unexpected [Unknown]
  - Arthralgia [Not Recovered/Not Resolved]
  - General physical condition abnormal [Not Recovered/Not Resolved]
  - Dehydration [Not Recovered/Not Resolved]
  - Collagen disorder [Not Recovered/Not Resolved]
